FAERS Safety Report 8765872 (Version 1)
Quarter: 2012Q4

REPORT INFORMATION
  Report Type: 
  Country: RU (occurrence: RU)
  Receive Date: 20120904
  Receipt Date: 20120904
  Transmission Date: 20130627
  Serious: Yes (Other)
  Sender: FDA-Public Use
  Company Number: RU-ASTRAZENECA-2012SE61252

PATIENT
  Sex: Female

DRUGS (3)
  1. SEROQUEL PROLONG [Suspect]
     Indication: DEAFNESS NEUROSENSORY
     Route: 048
  2. SEROQUEL PROLONG [Suspect]
     Indication: DEAFNESS NEUROSENSORY
     Route: 048
     Dates: start: 201208, end: 201208
  3. ANTIBIOTICS [Concomitant]

REACTIONS (3)
  - Necrosis [Not Recovered/Not Resolved]
  - Urticaria [Not Recovered/Not Resolved]
  - Off label use [Unknown]
